FAERS Safety Report 19489372 (Version 2)
Quarter: 2021Q3

REPORT INFORMATION
  Report Type: Spontaneous
  Country: FR (occurrence: FR)
  Receive Date: 20210703
  Receipt Date: 20210904
  Transmission Date: 20211014
  Serious: Yes (Hospitalization)
  Sender: FDA-Public Use
  Company Number: FR-ACCORD-230416

PATIENT
  Age: 56 Year
  Sex: Female

DRUGS (2)
  1. BREXIN [PIROXICAM] [Suspect]
     Active Substance: PIROXICAM BETADEX
     Indication: ARTHRALGIA
     Route: 048
     Dates: start: 20210501, end: 20210503
  2. ESOMEPRAZOLE/ESOMEPRAZOLE MAGNESIUM/ESOMEPRAZOLE SODIUM [Suspect]
     Active Substance: ESOMEPRAZOLE
     Indication: PROPHYLAXIS AGAINST GASTROINTESTINAL ULCER
     Route: 048
     Dates: start: 20210501, end: 20210503

REACTIONS (3)
  - Pruritus [Recovering/Resolving]
  - Erythema [Recovering/Resolving]
  - Erythema multiforme [Recovering/Resolving]

NARRATIVE: CASE EVENT DATE: 20210510
